FAERS Safety Report 15515811 (Version 4)
Quarter: 2019Q3

REPORT INFORMATION
  Report Type: Spontaneous
  Country: NL (occurrence: NL)
  Receive Date: 20181017
  Receipt Date: 20190706
  Transmission Date: 20191004
  Serious: Yes (Other)
  Sender: FDA-Public Use
  Company Number: NL-AUROBINDO-AUR-APL-2018-050829

PATIENT

DRUGS (39)
  1. METOPROLOL TABLET [Suspect]
     Active Substance: METOPROLOL
     Indication: PRODUCT USED FOR UNKNOWN INDICATION
     Dosage: 100 MILLIGRAM, ONCE A DAY, 2 TABLETS IN THE MORNING AND 1 IN THE EVENING, 50 MG, 2X/DAY
     Route: 065
  2. METOPROLOL TABLET [Suspect]
     Active Substance: METOPROLOL
     Dosage: 500 MG; 500 MG (2 DF IN MORNING, 1 DF IN THE EVENING)
     Route: 065
  3. METOPROLOL TABLET [Suspect]
     Active Substance: METOPROLOL
     Dosage: 50 MG QD; (50 MG, 1 IN 1 D)
     Route: 065
  4. DIGOXIN. [Suspect]
     Active Substance: DIGOXIN
     Indication: PRODUCT USED FOR UNKNOWN INDICATION
     Dosage: 0.062 MG, QD
     Route: 065
  5. ISOSORBIDE MONONITRATE. [Concomitant]
     Active Substance: ISOSORBIDE MONONITRATE
     Indication: PRODUCT USED FOR UNKNOWN INDICATION
     Dosage: 25 MG, ONCE DAILY (1 UNIT)
     Route: 065
  6. PANTOPRAZOLE [Concomitant]
     Active Substance: PANTOPRAZOLE
     Dosage: 80 MG, QD TEMPORARILY DOUBLE THE DOSE OF PANTOPRAZOLE
     Route: 065
  7. CALCIUM +D3 [Concomitant]
     Active Substance: CALCIUM\CHOLECALCIFEROL
     Indication: PRODUCT USED FOR UNKNOWN INDICATION
     Dosage: 500MG/800 IU, ONCE DAILY
     Route: 065
  8. METOPROLOL TABLET [Suspect]
     Active Substance: METOPROLOL
     Dosage: 50 MG, ONCE DAILY
     Route: 065
  9. METOPROLOL TABLET [Suspect]
     Active Substance: METOPROLOL
     Dosage: 50 UNIT NOT PROVIDED, ONCE DAILY (50, 1 IN 1 D)
     Route: 065
  10. METOPROLOL TABLET [Suspect]
     Active Substance: METOPROLOL
     Dosage: 50 UNK, QD
     Route: 065
  11. METOPROLOL TABLET [Suspect]
     Active Substance: METOPROLOL
     Dosage: 50 MG, QD (50 MG,1 IN 1 D)
     Route: 065
  12. DIGOXIN. [Suspect]
     Active Substance: DIGOXIN
     Dosage: 0.125 MG QD
     Route: 065
  13. PARACETAMOL [Concomitant]
     Active Substance: ACETAMINOPHEN
     Indication: PRODUCT USED FOR UNKNOWN INDICATION
     Dosage: UNK UNK, UNKNOWN FREQ
     Route: 065
  14. PANTOPRAZOLE [Concomitant]
     Active Substance: PANTOPRAZOLE
     Dosage: 40 MILLIGRAM, ONCE A DAY
     Route: 065
  15. DABIGATRAN [Concomitant]
     Active Substance: DABIGATRAN
     Indication: PRODUCT USED FOR UNKNOWN INDICATION
     Dosage: 300 MG, 1X/DAY
     Route: 065
     Dates: start: 2014
  16. METOPROLOL TABLET [Suspect]
     Active Substance: METOPROLOL
     Dosage: 500 MG BID; 500 MG (2 DF IN THE MORNING, 1 DF IN THE EVENING)
     Route: 065
  17. METOPROLOL TABLET [Suspect]
     Active Substance: METOPROLOL
     Dosage: 50 MG, 2X/DAY(IN THE MORNING AND IN THE EVENING
     Route: 065
  18. METOPROLOL TABLET [Suspect]
     Active Substance: METOPROLOL
     Dosage: 500 MILLIGRAM, 3 TIMES A DAY
     Route: 065
  19. DIPYRIDAMOLE. [Suspect]
     Active Substance: DIPYRIDAMOLE
     Indication: PRODUCT USED FOR UNKNOWN INDICATION
     Dosage: 200 MILLIGRAM, ONCE A DAY
     Route: 065
  20. TOLBUTAMIDE. [Concomitant]
     Active Substance: TOLBUTAMIDE
     Indication: PRODUCT USED FOR UNKNOWN INDICATION
     Dosage: 1000 MILLIGRAM, ONCE A DAY
     Route: 065
  21. METOPROLOL TABLET [Suspect]
     Active Substance: METOPROLOL
     Dosage: 50 MG, QD (50 MG 1 IN 1 D)
     Route: 065
  22. DIGOXIN. [Suspect]
     Active Substance: DIGOXIN
     Dosage: 0.062 MG, QD
     Route: 065
  23. DIGOXIN. [Suspect]
     Active Substance: DIGOXIN
     Dosage: 0.062 MG, QD (0.06 MG 1 IN 1D)
     Route: 065
  24. TAMSULOSIN [Suspect]
     Active Substance: TAMSULOSIN
     Indication: PRODUCT USED FOR UNKNOWN INDICATION
     Dosage: 0.4 MILLIGRAM, ONCE A DAY
     Route: 065
  25. ATORVASTATIN [Suspect]
     Active Substance: ATORVASTATIN
     Indication: PRODUCT USED FOR UNKNOWN INDICATION
     Dosage: 40 MILLIGRAM, ONCE A DAY
     Route: 065
  26. METOPROLOL TABLET [Suspect]
     Active Substance: METOPROLOL
     Dosage: 500 MG, Q12H; (500 MG, QD (2 DF IN THE MORNING, 1 DF IN THE EVENING) (500 MG 1 IN 12 HR))
     Route: 065
  27. METOPROLOL TABLET [Suspect]
     Active Substance: METOPROLOL
     Dosage: 500 MG, Q12H; DF IN THE MORNING, 1 DF IN THE EVENING) (500 MG 1 IN 12 HR)  A DAY
     Route: 065
  28. METFORMIN HYDROCHLORIDE. [Concomitant]
     Active Substance: METFORMIN HYDROCHLORIDE
     Indication: PRODUCT USED FOR UNKNOWN INDICATION
     Dosage: 1500 MILLIGRAM, ONCE A DAY
     Route: 065
  29. METOPROLOL TABLET [Suspect]
     Active Substance: METOPROLOL
     Dosage: 500 MG, (2 DF IN THE MORNING, 1 DF IN THE EVENING) 500 MG, 1 IN 12 HR)  A DAY
     Route: 065
  30. METOPROLOL TABLET [Suspect]
     Active Substance: METOPROLOL
     Dosage: 2 TABLETS IN THE MORNING AND 1 IN THE EVENING;TWICE DAILY DAILY (50, 1 IN 1 D)
     Route: 065
  31. METOPROLOL TABLET [Suspect]
     Active Substance: METOPROLOL
     Dosage: 50 UNIT NOT PROVIDED, ONCE DAILY (50, 1 IN 1 D)
     Route: 065
  32. METOPROLOL TABLET [Suspect]
     Active Substance: METOPROLOL
     Dosage: 500 MG, (2 DF IN THE MORNING, 1 DF IN THE EVENING)
     Route: 065
  33. DIGOXIN. [Suspect]
     Active Substance: DIGOXIN
     Dosage: 0.13 MG QD
     Route: 065
  34. DIGOXIN. [Suspect]
     Active Substance: DIGOXIN
     Dosage: 0.125 MG, QD (0.13 MG,1 IN 1 D)
     Route: 065
  35. TOLBUTAMIDE. [Concomitant]
     Active Substance: TOLBUTAMIDE
     Dosage: 500 MILLIGRAM, ONCE A DAY
     Route: 065
  36. METOPROLOL TABLET [Suspect]
     Active Substance: METOPROLOL
     Dosage: 50 MG, QD
     Route: 065
  37. METOPROLOL TABLET [Suspect]
     Active Substance: METOPROLOL
     Dosage: 500 MG, Q12H (DF IN THE MORNING, 1 DF IN THE EVENING)
     Route: 065
  38. PANTOPRAZOLE [Concomitant]
     Active Substance: PANTOPRAZOLE
     Indication: PRODUCT USED FOR UNKNOWN INDICATION
     Dosage: UNK UNK, UNKNOWN FREQ,REDUCED
     Route: 065
  39. DABIGATRAN [Concomitant]
     Active Substance: DABIGATRAN
     Dosage: 150 MILLIGRAM, TWO TIMES A DAY
     Route: 065
     Dates: start: 2014

REACTIONS (5)
  - Gastrointestinal disorder [Recovered/Resolved]
  - Gastric disorder [Recovered/Resolved]
  - Drug ineffective [Unknown]
  - Cognitive disorder [Not Recovered/Not Resolved]
  - Dizziness [Recovering/Resolving]
